FAERS Safety Report 19797002 (Version 1)
Quarter: 2021Q3

REPORT INFORMATION
  Report Type: Spontaneous
  Country: US (occurrence: US)
  Receive Date: 20210905
  Receipt Date: 20210905
  Transmission Date: 20211014
  Serious: Yes (Death)
  Sender: FDA-Public Use
  Company Number: None

PATIENT
  Age: 60 Year
  Sex: Female
  Weight: 96 kg

DRUGS (1)
  1. TOCILIZUMAB. [Suspect]
     Active Substance: TOCILIZUMAB
     Dates: start: 20210828, end: 20210828

REACTIONS (12)
  - Unresponsive to stimuli [None]
  - Acidosis [None]
  - Sepsis [None]
  - Pulse absent [None]
  - Acute kidney injury [None]
  - Apnoea [None]
  - Blood glucose increased [None]
  - SARS-CoV-2 test positive [None]
  - Agitation [None]
  - Mental status changes [None]
  - Hypoxia [None]
  - Respiratory failure [None]

NARRATIVE: CASE EVENT DATE: 20210829
